FAERS Safety Report 12871004 (Version 4)
Quarter: 2016Q4

REPORT INFORMATION
  Report Type: Report from Study
  Country: HU (occurrence: HU)
  Receive Date: 20161021
  Receipt Date: 20161115
  Transmission Date: 20170207
  Serious: Yes (Hospitalization, Other)
  Sender: FDA-Public Use
  Company Number: PHHY2016HU143252

PATIENT
  Age: 61 Year
  Sex: Female

DRUGS (3)
  1. AUGMENTIN DUO [Concomitant]
     Active Substance: AMOXICILLIN\CLAVULANATE POTASSIUM
     Indication: PRODUCT USED FOR UNKNOWN INDICATION
     Dosage: UNK
     Route: 065
     Dates: start: 20161017, end: 20161024
  2. AFINITOR [Suspect]
     Active Substance: EVEROLIMUS
     Indication: BREAST CANCER
     Dosage: 10 MG, QD
     Route: 065
     Dates: start: 20160920, end: 20161017
  3. INSULIN [Concomitant]
     Active Substance: INSULIN NOS
     Indication: PRODUCT USED FOR UNKNOWN INDICATION
     Route: 065

REACTIONS (28)
  - Blood pressure increased [Recovered/Resolved with Sequelae]
  - Asthenia [Recovered/Resolved with Sequelae]
  - Pulmonary fibrosis [Not Recovered/Not Resolved]
  - Cyanosis [Unknown]
  - Fatigue [Unknown]
  - Pyrexia [Unknown]
  - Haemoglobin decreased [Unknown]
  - Blood pH increased [Unknown]
  - Chest pain [Unknown]
  - Drug intolerance [Unknown]
  - Neutrophil count increased [Unknown]
  - Oxygen saturation decreased [Unknown]
  - Mean cell volume decreased [Unknown]
  - Interstitial lung disease [Not Recovered/Not Resolved]
  - Lymphocyte count decreased [Unknown]
  - Chest discomfort [Unknown]
  - PCO2 decreased [Unknown]
  - Cough [Unknown]
  - Hyperventilation [Unknown]
  - Red cell distribution width increased [Unknown]
  - Blood glucose increased [Recovered/Resolved with Sequelae]
  - Diarrhoea [Recovered/Resolved with Sequelae]
  - Wheezing [Unknown]
  - Mean cell haemoglobin decreased [Unknown]
  - Malaise [Recovered/Resolved with Sequelae]
  - Pain [Recovered/Resolved with Sequelae]
  - Dyspnoea [Unknown]
  - PO2 decreased [Unknown]

NARRATIVE: CASE EVENT DATE: 20161017
